FAERS Safety Report 9137764 (Version 3)
Quarter: 2013Q2

REPORT INFORMATION
  Report Type: Report from Study
  Country: BR (occurrence: BR)
  Receive Date: 20130304
  Receipt Date: 20130510
  Transmission Date: 20140414
  Serious: Yes (Other)
  Sender: FDA-Public Use
  Company Number: PHHY2013BR021144

PATIENT
  Sex: Female
  Weight: 53 kg

DRUGS (2)
  1. RITALIN LA [Suspect]
     Indication: ATTENTION DEFICIT/HYPERACTIVITY DISORDER
     Dosage: UNK UKN, UNK
     Route: 048
     Dates: start: 201210, end: 201211
  2. KITAPEN [Concomitant]
     Indication: ATTENTION DEFICIT/HYPERACTIVITY DISORDER
     Dosage: 2 DF, AT NIGHT
     Route: 048
     Dates: start: 201210

REACTIONS (8)
  - Borderline personality disorder [Not Recovered/Not Resolved]
  - Impatience [Recovering/Resolving]
  - Agitation [Recovering/Resolving]
  - Aggression [Recovering/Resolving]
  - Psychomotor hyperactivity [Recovering/Resolving]
  - Growth retardation [Unknown]
  - Drug ineffective [Unknown]
  - Drug effect delayed [Unknown]
